FAERS Safety Report 11358714 (Version 2)
Quarter: 2015Q3

REPORT INFORMATION
  Report Type: Spontaneous
  Country: DE (occurrence: None)
  Receive Date: 20150806
  Receipt Date: 20150825
  Transmission Date: 20151125
  Serious: Yes (Hospitalization, Disabling)
  Sender: FDA-Public Use
  Company Number: 2015FE02564

PATIENT
  Age: 1 Year
  Sex: Male

DRUGS (2)
  1. BREVACTID (CHORIONIC GONADOTROPHIN) POWDER AND SOLVENT FOR SOLUTION FOR INJECTION, 500IUM [Suspect]
     Active Substance: GONADOTROPHIN, CHORIONIC
     Indication: CRYPTORCHISM
     Route: 030
     Dates: start: 20141015
  2. KRYPTOCUR (GONADORELIN) [Concomitant]

REACTIONS (2)
  - Testicular torsion [None]
  - Testicular necrosis [None]

NARRATIVE: CASE EVENT DATE: 20141124
